FAERS Safety Report 16923514 (Version 2)
Quarter: 2020Q1

REPORT INFORMATION
  Report Type: Report from Study
  Country: IT (occurrence: IT)
  Receive Date: 20191016
  Receipt Date: 20200121
  Transmission Date: 20200409
  Serious: Yes (Other)
  Sender: FDA-Public Use
  Company Number: IT-ACCORD-157718

PATIENT
  Age: 77 Year
  Sex: Female

DRUGS (10)
  1. METFORMIN [Suspect]
     Active Substance: METFORMIN HYDROCHLORIDE
     Indication: DIABETES MELLITUS
     Dosage: LAST ADMINISTRATION: 03-JUL-2019
     Route: 048
     Dates: start: 20180703
  2. ESOMEPRAZOLE. [Concomitant]
     Active Substance: ESOMEPRAZOLE MAGNESIUM
  3. LASIX [Concomitant]
     Active Substance: FUROSEMIDE
  4. RAMIPRIL. [Concomitant]
     Active Substance: RAMIPRIL
  5. SERENASE [Concomitant]
  6. BASSADO [Concomitant]
     Active Substance: DOXYCYCLINE
  7. BISOPROLOL [Concomitant]
     Active Substance: BISOPROLOL
  8. PLAVIX [Concomitant]
     Active Substance: CLOPIDOGREL BISULFATE
  9. GLIMEPIRIDE. [Suspect]
     Active Substance: GLIMEPIRIDE
     Indication: DIABETES MELLITUS
     Dosage: LAST ADMINISTRATION :03-JUL-2019
     Route: 048
     Dates: start: 20180703
  10. PIOGLITAZONE/PIOGLITAZONE HYDROCHLORIDE [Suspect]
     Active Substance: PIOGLITAZONE HYDROCHLORIDE
     Indication: DIABETES MELLITUS
     Dosage: LAST ADMINISTRATION: 03-JUL-2019
     Route: 048
     Dates: start: 20180703

REACTIONS (1)
  - Hypoglycaemia [Recovering/Resolving]

NARRATIVE: CASE EVENT DATE: 20190703
